FAERS Safety Report 17017679 (Version 2)
Quarter: 2019Q4

REPORT INFORMATION
  Report Type: Spontaneous
  Country: US (occurrence: US)
  Receive Date: 20191111
  Receipt Date: 20191205
  Transmission Date: 20200122
  Serious: Yes (Hospitalization)
  Sender: FDA-Public Use
  Company Number: US-BIOCODEX SA-201901299

PATIENT
  Sex: Male

DRUGS (1)
  1. DIACOMIT [Suspect]
     Active Substance: STIRIPENTOL
     Indication: SEVERE MYOCLONIC EPILEPSY OF INFANCY
     Dosage: 500MG TWICE A DAY AND 750MG IN THE EVENING
     Route: 065
     Dates: start: 20190604, end: 20191105

REACTIONS (3)
  - Product dose omission [Unknown]
  - Wound [Unknown]
  - Product use in unapproved indication [Unknown]
